FAERS Safety Report 5668967-1 (Version None)
Quarter: 2008Q1

REPORT INFORMATION
  Report Type: 
  Country: None (occurrence: None)
  Receive Date: 20080317
  Receipt Date: 20080306
  Transmission Date: 20080703
  Serious: Yes (Other)
  Sender: FDA-Public Use
  Company Number: US-ROCHE-551745

PATIENT
  Age: 46 Year
  Sex: Male

DRUGS (3)
  1. PEG-INTERFERON A-2A (RO 25-8310) [Suspect]
     Indication: HEPATITIS C
     Route: 065
     Dates: start: 20080214
  2. RIBAVIRIN [Suspect]
     Route: 065
     Dates: start: 20080214
  3. SYNTHROID [Concomitant]

REACTIONS (1)
  - SURGERY [None]
